FAERS Safety Report 4791022-X (Version None)
Quarter: 2005Q4

REPORT INFORMATION
  Report Type: 
  Country: None (occurrence: None)
  Receive Date: 20051005
  Receipt Date: 20050926
  Transmission Date: 20060501
  Serious: Yes (Other)
  Sender: FDA-Public Use
  Company Number: P200500013

PATIENT
  Age: 83 Year
  Sex: Male

DRUGS (8)
  1. PLENAXIS [Suspect]
     Indication: PROSTATE CANCER
     Dosage: 100 MG, SINGLE
     Dates: start: 20050525, end: 20050525
  2. PLENAXIS [Suspect]
     Indication: PROSTATE CANCER
     Dosage: 100 MG, SINGLE
     Dates: start: 20050608, end: 20050608
  3. CARDURA IRE/(DOXAZOSIN MESILATE) [Concomitant]
  4. ASPIRIN [Concomitant]
  5. MULTIVITAMIN (VITAMIN NOS) [Concomitant]
  6. VITAMIN C (ASCORBIC ACID) [Concomitant]
  7. ADVAIR DISKUS 100/50 [Concomitant]
  8. GAS X (SIMETICONE) [Concomitant]

REACTIONS (4)
  - DIARRHOEA [None]
  - NOCTURIA [None]
  - PROSTATIC SPECIFIC ANTIGEN INCREASED [None]
  - URINARY INCONTINENCE [None]
